FAERS Safety Report 9841587 (Version 1)
Quarter: 2013Q4

REPORT INFORMATION
  Report Type: Spontaneous
  Country: US (occurrence: None)
  Receive Date: 20131223
  Receipt Date: 20131223
  Transmission Date: 20140711
  Serious: Yes (Other)
  Sender: FDA-Public Use
  Company Number: 221893LEO

PATIENT
  Sex: Female

DRUGS (2)
  1. PICATO [Suspect]
     Indication: ACTINIC KERATOSIS
     Dosage: 1 IN 1 D, DERMAL
     Dates: start: 20130418, end: 20130420
  2. AMIODARONE (AMIODARONE) [Concomitant]

REACTIONS (5)
  - Bronchitis [None]
  - Rhinorrhoea [None]
  - Eye pruritus [None]
  - Inappropriate schedule of drug administration [None]
  - Incorrect drug administration duration [None]
